FAERS Safety Report 5609631-4 (Version None)
Quarter: 2008Q1

REPORT INFORMATION
  Report Type: 
  Country: None (occurrence: None)
  Receive Date: 20080131
  Receipt Date: 20080125
  Transmission Date: 20080703
  Serious: Yes (Other)
  Sender: FDA-Public Use
  Company Number: A0706438A

PATIENT

DRUGS (1)
  1. COREG CR [Suspect]
     Indication: SUPRAVENTRICULAR TACHYCARDIA
     Route: 048

REACTIONS (2)
  - ATRIAL FLUTTER [None]
  - SUPRAVENTRICULAR TACHYCARDIA [None]
